FAERS Safety Report 6624501-0 (Version None)
Quarter: 2010Q1

REPORT INFORMATION
  Report Type: 
  Country: None (occurrence: None)
  Receive Date: 20100310
  Receipt Date: 20091021
  Transmission Date: 20100710
  Serious: No
  Sender: FDA-Public Use
  Company Number: US-BIOGENIDEC-2009BI034020

PATIENT
  Age: 33 Year
  Sex: Female

DRUGS (1)
  1. AVONEX [Suspect]
     Indication: MULTIPLE SCLEROSIS
     Route: 030
     Dates: start: 20040401

REACTIONS (5)
  - DECREASED APPETITE [None]
  - INJECTION SITE HAEMORRHAGE [None]
  - STRESS [None]
  - TREMOR [None]
  - WEIGHT DECREASED [None]
